FAERS Safety Report 18842758 (Version 8)
Quarter: 2021Q3

REPORT INFORMATION
  Report Type: Spontaneous
  Country: US (occurrence: US)
  Receive Date: 20210204
  Receipt Date: 20210809
  Transmission Date: 20211014
  Serious: No
  Sender: FDA-Public Use
  Company Number: US-DSJP-DSU-2021-103291

PATIENT
  Age: 41 Year
  Sex: Female

DRUGS (3)
  1. TURALIO [Suspect]
     Active Substance: PEXIDARTINIB HYDROCHLORIDE
     Indication: GIANT CELL TUMOUR OF TENDON SHEATH
     Dosage: 200 MG, BID
     Route: 048
     Dates: start: 20210202
  2. TURALIO [Suspect]
     Active Substance: PEXIDARTINIB HYDROCHLORIDE
     Indication: GIANT CELL TUMOUR OF TENDON SHEATH
     Dosage: UNK, BID
     Route: 048
  3. ZOFRAN [Concomitant]
     Active Substance: ONDANSETRON HYDROCHLORIDE
     Indication: NAUSEA
     Dosage: UNK
     Route: 065

REACTIONS (9)
  - Nausea [Recovering/Resolving]
  - Periorbital swelling [Not Recovered/Not Resolved]
  - Blood calcium increased [Unknown]
  - Eye swelling [Recovered/Resolved]
  - Feeling abnormal [Recovered/Resolved]
  - Hair colour changes [Unknown]
  - Dysgeusia [Not Recovered/Not Resolved]
  - Fatigue [Not Recovered/Not Resolved]
  - Blood albumin increased [Unknown]

NARRATIVE: CASE EVENT DATE: 2021
